FAERS Safety Report 22221357 (Version 1)
Quarter: 2023Q2

REPORT INFORMATION
  Report Type: Spontaneous
  Country: US (occurrence: US)
  Receive Date: 20230418
  Receipt Date: 20230418
  Transmission Date: 20230722
  Serious: No
  Sender: FDA-Public Use
  Company Number: US-CADILA HEALTHCARE LIMITED-US-ZYDUS-080375

PATIENT

DRUGS (2)
  1. MESALAMINE [Suspect]
     Active Substance: MESALAMINE
     Indication: Colitis ulcerative
     Dosage: 2 TABLETS, ONCE DAILY
     Route: 048
     Dates: start: 2022, end: 202205
  2. MESALAMINE [Suspect]
     Active Substance: MESALAMINE
     Dosage: 2 TABLETS, TWICE DAILY
     Route: 048
     Dates: start: 202205, end: 20220701

REACTIONS (1)
  - Drug ineffective [Recovered/Resolved]

NARRATIVE: CASE EVENT DATE: 20220101
